FAERS Safety Report 4943997-3 (Version None)
Quarter: 2006Q1

REPORT INFORMATION
  Report Type: 
  Country: None (occurrence: None)
  Receive Date: 20060313
  Receipt Date: 20060313
  Transmission Date: 20060701
  Serious: Yes (Other)
  Sender: FDA-Public Use
  Company Number: None

PATIENT
  Sex: Male
  Weight: 62 kg

DRUGS (7)
  1. CYCLOPHOSPHAMIDE [Suspect]
     Indication: AIDS RELATED COMPLICATION
     Dosage: 1010 MG
     Dates: start: 20060215
  2. DOXORUBICIN HCL [Suspect]
     Dosage: 18 MG
     Dates: start: 20060214
  3. ETOPOSIDE [Suspect]
     Dosage: 90 MG
     Dates: start: 20060214
  4. G-CSF FILGRASTIM AMGEN) [Suspect]
     Dosage: 300 MCG
     Dates: start: 20060222
  5. PREDNISONE [Suspect]
     Dosage: 110 MG
     Dates: start: 20060215
  6. VINCRISTINE SULFATE [Suspect]
     Dosage: .72 MG
     Dates: start: 20060214
  7. TRUVADA [Concomitant]

REACTIONS (2)
  - DRUG DOSE OMISSION [None]
  - NEUTROPENIA [None]
